FAERS Safety Report 13101165 (Version 1)
Quarter: 2017Q1

REPORT INFORMATION
  Report Type: Spontaneous
  Country: US (occurrence: US)
  Receive Date: 20170110
  Receipt Date: 20170110
  Transmission Date: 20170428
  Serious: Yes (Hospitalization, Other)
  Sender: FDA-Public Use
  Company Number: None

PATIENT
  Age: 67 Year
  Sex: Female
  Weight: 80.1 kg

DRUGS (1)
  1. TIKOSYN [Suspect]
     Active Substance: DOFETILIDE
     Indication: ATRIAL FIBRILLATION
     Dates: start: 20160822, end: 20160823

REACTIONS (4)
  - Cardiac arrest [None]
  - Procedural complication [None]
  - Rib fracture [None]
  - Sternal fracture [None]

NARRATIVE: CASE EVENT DATE: 20160823
